FAERS Safety Report 16928130 (Version 2)
Quarter: 2019Q4

REPORT INFORMATION
  Report Type: Report from Study
  Country: US (occurrence: US)
  Receive Date: 20191017
  Receipt Date: 20191019
  Transmission Date: 20200122
  Serious: Yes (Hospitalization, Disabling, Congenital Anomaly, Other)
  Sender: FDA-Public Use
  Company Number: US-ACCORD-157104

PATIENT
  Sex: Female

DRUGS (2)
  1. MISOPROSTOL. [Concomitant]
     Active Substance: MISOPROSTOL
     Indication: ABORTION INDUCED
     Route: 064
  2. METHOTREXATE. [Suspect]
     Active Substance: METHOTREXATE
     Indication: ABORTION INDUCED
     Route: 064

REACTIONS (13)
  - Hypertelorism of orbit [Not Recovered/Not Resolved]
  - Microcephaly [Not Recovered/Not Resolved]
  - Premature baby [Unknown]
  - Clinodactyly [Recovering/Resolving]
  - Foetal exposure during pregnancy [Unknown]
  - Micrognathia [Not Recovered/Not Resolved]
  - Abnormal palmar/plantar creases [Unknown]
  - Nose deformity [Unknown]
  - Microphthalmos [Not Recovered/Not Resolved]
  - Foetal methotrexate syndrome [Not Recovered/Not Resolved]
  - Aplasia [Unknown]
  - Neck deformity [Unknown]
  - Skull malformation [Unknown]
